FAERS Safety Report 21386767 (Version 2)
Quarter: 2022Q4

REPORT INFORMATION
  Report Type: Spontaneous
  Country: DE (occurrence: DE)
  Receive Date: 20220928
  Receipt Date: 20221129
  Transmission Date: 20230113
  Serious: Yes (Hospitalization, Other)
  Sender: FDA-Public Use
  Company Number: TR-ALKEM LABORATORIES LIMITED-TR-ALKEM-2022-10756

PATIENT
  Age: 14 Year
  Sex: Female

DRUGS (1)
  1. COLCHICINE [Suspect]
     Active Substance: COLCHICINE
     Indication: Suicide attempt
     Dosage: 0.5 MILLIGRAM (25 TABLETS EACH OF 0.5 MG (0.23 MG/KG))
     Route: 065

REACTIONS (6)
  - Toxicity to various agents [Recovered/Resolved]
  - Overdose [Unknown]
  - Nausea [Recovered/Resolved]
  - Visual impairment [Recovered/Resolved]
  - Prothrombin time shortened [Recovered/Resolved]
  - Aspartate aminotransferase increased [Recovered/Resolved]
